FAERS Safety Report 8697896 (Version 3)
Quarter: 2012Q4

REPORT INFORMATION
  Report Type: 
  Country: DE (occurrence: JP)
  Receive Date: 20120801
  Receipt Date: 20121012
  Transmission Date: 20130627
  Serious: Yes (Death)
  Sender: FDA-Public Use
  Company Number: JP-FRI-1000037440

PATIENT
  Age: 77 Year
  Sex: Female

DRUGS (6)
  1. MEMANTINE [Suspect]
     Indication: DEMENTIA ALZHEIMER^S TYPE
     Dosage: 5 mg
     Route: 048
     Dates: start: 20120522, end: 20120619
  2. MEMANTINE [Suspect]
     Dosage: 10 mg
     Route: 048
     Dates: start: 20120620, end: 20120623
  3. ARICEPT [Concomitant]
     Indication: DEMENTIA ALZHEIMER^S TYPE
     Dosage: 10 mg
     Route: 048
     Dates: start: 201202, end: 20120623
  4. OLMETEC [Concomitant]
     Indication: HYPERTENSION
     Dosage: 20 mg
     Route: 048
     Dates: start: 20100423, end: 20120623
  5. OPALMON [Concomitant]
     Indication: LUMBAR SPINAL STENOSIS
     Dosage: 10 mg
     Route: 048
     Dates: start: 201103, end: 20120623
  6. BONALON [Concomitant]
     Indication: OSTEOPOROSIS
     Dosage: 35 mg
     Route: 048
     Dates: start: 20111220, end: 20120623

REACTIONS (3)
  - Death [Fatal]
  - Fall [None]
  - Cardio-respiratory arrest [None]
